FAERS Safety Report 9469980 (Version 1)
Quarter: 2013Q3

REPORT INFORMATION
  Report Type: Spontaneous
  Country: US (occurrence: US)
  Receive Date: 20130822
  Receipt Date: 20130822
  Transmission Date: 20140515
  Serious: Yes (Other)
  Sender: FDA-Public Use
  Company Number: US-MYLANLABS-2013S1018166

PATIENT
  Sex: Female
  Weight: 54.43 kg

DRUGS (1)
  1. DIVALPROEX SODIUM EXTENDED-RELEASE [Suspect]
     Indication: CONVULSION
     Route: 048
     Dates: start: 2012

REACTIONS (3)
  - Convulsion [Recovered/Resolved]
  - Anticonvulsant drug level below therapeutic [Not Recovered/Not Resolved]
  - Medication residue present [Not Recovered/Not Resolved]
